FAERS Safety Report 16531594 (Version 3)
Quarter: 2019Q3

REPORT INFORMATION
  Report Type: Spontaneous
  Country: DE (occurrence: DE)
  Receive Date: 20190704
  Receipt Date: 20190808
  Transmission Date: 20191004
  Serious: Yes (Hospitalization, Other)
  Sender: FDA-Public Use
  Company Number: DE-AUROBINDO-AUR-APL-2012-04474

PATIENT

DRUGS (6)
  1. PROTAPHANE [Concomitant]
     Active Substance: INSULIN HUMAN
     Indication: TYPE 2 DIABETES MELLITUS
     Dosage: 30 INTERNATIONAL UNIT, DAILY
     Route: 058
     Dates: start: 20100126, end: 20100210
  2. RAMIPRIL TABLET [Suspect]
     Active Substance: RAMIPRIL
     Indication: HYPERTENSION
     Dosage: UNK UNK,UNK,
     Route: 048
     Dates: start: 20090709, end: 20100126
  3. NOVORAPID [Concomitant]
     Active Substance: INSULIN ASPART
     Indication: TYPE 2 DIABETES MELLITUS
     Dosage: 52 INTERNATIONAL UNIT, DAILY
     Route: 058
     Dates: start: 20100126, end: 20100210
  4. METOPROLOL. [Suspect]
     Active Substance: METOPROLOL
     Indication: HYPERTENSION
     Dosage: UNK UNK,UNK,
     Route: 048
     Dates: start: 20090709, end: 20100126
  5. METFORMIN AUROBINDO FILMCOATED TABLETS 500MG [Suspect]
     Active Substance: METFORMIN HYDROCHLORIDE
     Indication: TYPE 2 DIABETES MELLITUS
     Dosage: UNK UNK,UNK,
     Route: 048
     Dates: start: 20090709, end: 20100126
  6. DOPEGYT [Concomitant]
     Active Substance: METHYLDOPA
     Indication: HYPERTENSION
     Dosage: 250 MILLIGRAM, 3 TIMES A DAY
     Route: 048
     Dates: start: 20100126, end: 20100210

REACTIONS (6)
  - Transaminases increased [Unknown]
  - Maternal exposure during pregnancy [Recovered/Resolved]
  - Glycosylated haemoglobin increased [Unknown]
  - Premature delivery [Unknown]
  - Platelet count decreased [Unknown]
  - HELLP syndrome [Unknown]

NARRATIVE: CASE EVENT DATE: 20100126
